FAERS Safety Report 5693244-2 (Version None)
Quarter: 2008Q2

REPORT INFORMATION
  Report Type: 
  Country: None (occurrence: None)
  Receive Date: 20080403
  Receipt Date: 20080329
  Transmission Date: 20081010
  Serious: Yes (Hospitalization)
  Sender: FDA-Public Use
  Company Number: PHHO2008PL03596

PATIENT
  Age: 55 Year
  Sex: Male
  Weight: 68.6 kg

DRUGS (3)
  1. MYFORTIC [Suspect]
     Indication: RENAL TRANSPLANT
     Dosage: 1080 MG, BID
     Route: 048
     Dates: start: 20080201, end: 20080306
  2. MYFORTIC [Suspect]
     Dosage: 360 MG, BID
     Route: 048
     Dates: start: 20080312
  3. ENCORTON [Concomitant]
     Dosage: 20 MG / DAY
     Route: 048
     Dates: start: 20080313

REACTIONS (7)
  - ABDOMINAL PAIN LOWER [None]
  - BLOOD CREATININE INCREASED [None]
  - CYTOMEGALOVIRUS INFECTION [None]
  - FLATULENCE [None]
  - GASTRITIS [None]
  - OESOPHAGITIS [None]
  - PYREXIA [None]
